FAERS Safety Report 10214286 (Version 1)
Quarter: 2014Q2

REPORT INFORMATION
  Report Type: Spontaneous
  Country: GB (occurrence: None)
  Receive Date: 20140530
  Receipt Date: 20140530
  Transmission Date: 20141212
  Serious: Yes (Disabling)
  Sender: FDA-Public Use
  Company Number: 2014-001503

PATIENT
  Age: 18 Year
  Sex: Male
  Weight: 60 kg

DRUGS (1)
  1. SARAFEM (FLUOXETINE HYDROCHLORIDE) TABLET, 20MG [Suspect]
     Indication: DEPRESSION
     Route: 048
     Dates: start: 20120501, end: 20140501

REACTIONS (1)
  - Fatigue [None]
